FAERS Safety Report 16934141 (Version 1)
Quarter: 2019Q4

REPORT INFORMATION
  Report Type: Spontaneous
  Country: IT (occurrence: IT)
  Receive Date: 20191018
  Receipt Date: 20191018
  Transmission Date: 20200122
  Serious: Yes (Hospitalization)
  Sender: FDA-Public Use
  Company Number: IT-ACCORD-158352

PATIENT
  Age: 70 Year
  Sex: Female
  Weight: 52 kg

DRUGS (3)
  1. ATORVASTATIN/ATORVASTATIN CALCIUM [Suspect]
     Active Substance: ATORVASTATIN CALCIUM
     Indication: HYPERCHOLESTEROLAEMIA
     Route: 048
     Dates: start: 20160101, end: 20190810
  2. NAPROXEN. [Concomitant]
     Active Substance: NAPROXEN
     Dates: start: 20190710, end: 20190720
  3. DICLOFENAC [Concomitant]
     Active Substance: DICLOFENAC
     Route: 030
     Dates: start: 20190726, end: 20190806

REACTIONS (2)
  - Asthenia [Recovering/Resolving]
  - Necrotising myositis [Recovering/Resolving]

NARRATIVE: CASE EVENT DATE: 20190809
